FAERS Safety Report 12385447 (Version 2)
Quarter: 2016Q2

REPORT INFORMATION
  Report Type: Report from Study
  Country: DE (occurrence: DE)
  Receive Date: 20160519
  Receipt Date: 20160610
  Transmission Date: 20160815
  Serious: Yes (Other)
  Sender: FDA-Public Use
  Company Number: PHHY2015DE122816

PATIENT
  Age: 26 Year
  Sex: Female
  Weight: 64 kg

DRUGS (3)
  1. ILARIS [Suspect]
     Active Substance: CANAKINUMAB
     Indication: MUCKLE-WELLS SYNDROME
  2. ANAKINRA [Concomitant]
     Active Substance: ANAKINRA
     Indication: MUCKLE-WELLS SYNDROME
     Dosage: UNK
  3. ILARIS [Suspect]
     Active Substance: CANAKINUMAB
     Indication: CRYOPYRIN ASSOCIATED PERIODIC SYNDROME
     Dosage: 150 MG, EVERY 8 WEEKS
     Route: 058
     Dates: start: 20111016, end: 20150607

REACTIONS (3)
  - Maternal exposure during pregnancy [Unknown]
  - Pre-eclampsia [Unknown]
  - Premature delivery [Unknown]

NARRATIVE: CASE EVENT DATE: 20150602
